FAERS Safety Report 6856691-9 (Version None)
Quarter: 2010Q3

REPORT INFORMATION
  Report Type: 
  Country: None (occurrence: None)
  Receive Date: 20100719
  Receipt Date: 20100710
  Transmission Date: 20110219
  Serious: Yes (Death, Other)
  Sender: FDA-Public Use
  Company Number: US-BAYER-201014390GPV

PATIENT
  Age: 73 Year
  Sex: Female

DRUGS (6)
  1. ALEMTUZUMAB [Suspect]
     Indication: ANGIOIMMUNOBLASTIC T-CELL LYMPHOMA RECURRENT
     Dates: start: 20070601, end: 20070101
  2. ALEMTUZUMAB [Suspect]
     Dates: start: 20090601, end: 20090101
  3. PREDNISONE [Suspect]
     Indication: ANGIOIMMUNOBLASTIC T-CELL LYMPHOMA RECURRENT
     Dates: start: 20061101, end: 20070501
  4. PREDNISONE [Suspect]
     Dates: start: 20090601, end: 20090101
  5. BACTRIM [Concomitant]
     Indication: ANTIBIOTIC PROPHYLAXIS
  6. ACYCLOVIR [Concomitant]
     Indication: ANTIVIRAL PROPHYLAXIS

REACTIONS (5)
  - ANGIOIMMUNOBLASTIC T-CELL LYMPHOMA RECURRENT [None]
  - CYTOMEGALOVIRUS INFECTION [None]
  - FEBRILE NEUTROPENIA [None]
  - NEUTROPENIA [None]
  - THROMBOCYTOPENIA [None]
